FAERS Safety Report 19277932 (Version 1)
Quarter: 2021Q2

REPORT INFORMATION
  Report Type: Spontaneous
  Country: US (occurrence: US)
  Receive Date: 20210520
  Receipt Date: 20210520
  Transmission Date: 20210717
  Serious: No
  Sender: FDA-Public Use
  Company Number: US-STRIDES ARCOLAB LIMITED-2021SP002333

PATIENT
  Age: 21 Year
  Sex: Female

DRUGS (4)
  1. MENTHOL. [Suspect]
     Active Substance: MENTHOL
     Indication: GROIN PAIN
     Dosage: UNK
     Route: 061
  2. MENTHOL. [Suspect]
     Active Substance: MENTHOL
     Indication: ARTHRALGIA
  3. IBUPROFEN. [Suspect]
     Active Substance: IBUPROFEN
     Indication: ARTHRALGIA
  4. IBUPROFEN. [Suspect]
     Active Substance: IBUPROFEN
     Indication: GROIN PAIN
     Dosage: UNK
     Route: 065

REACTIONS (1)
  - Drug ineffective [Unknown]
